FAERS Safety Report 12409355 (Version 1)
Quarter: 2016Q2

REPORT INFORMATION
  Report Type: Spontaneous
  Country: US (occurrence: US)
  Receive Date: 20160526
  Receipt Date: 20160526
  Transmission Date: 20160815
  Serious: Yes (Other)
  Sender: FDA-Public Use
  Company Number: US-BAUSCH-BL-2015-024028

PATIENT
  Sex: Female

DRUGS (1)
  1. SECONAL SODIUM [Suspect]
     Active Substance: SECOBARBITAL SODIUM
     Indication: PRODUCT USED FOR UNKNOWN INDICATION
     Route: 048

REACTIONS (2)
  - Overdose [Unknown]
  - Abortion [Unknown]

NARRATIVE: CASE EVENT DATE: 1972
